FAERS Safety Report 16265301 (Version 2)
Quarter: 2019Q2

REPORT INFORMATION
  Report Type: Report from Study
  Country: None (occurrence: CH)
  Receive Date: 20190502
  Receipt Date: 20190515
  Transmission Date: 20190711
  Serious: Yes (Hospitalization)
  Sender: FDA-Public Use
  Company Number: CH-ABBVIE-18S-151-2522816-00

PATIENT
  Sex: Female

DRUGS (3)
  1. DUODOPA [Suspect]
     Active Substance: CARBIDOPA\LEVODOPA
     Indication: PARKINSON^S DISEASE
     Route: 050
     Dates: start: 20160126, end: 20171120
  2. DUODOPA [Suspect]
     Active Substance: CARBIDOPA\LEVODOPA
     Dosage: MD 7.5ML; CD-DAY 2.7ML/H; ED:1ML ,16H THERAPY
     Route: 050
     Dates: start: 20171120, end: 20181010
  3. DUODOPA [Suspect]
     Active Substance: CARBIDOPA\LEVODOPA
     Dosage: MD:7.5ML; CD-DAY 2.6ML/H; ED1ML; BLOCK TIME 1H, 16H THERAPY
     Route: 050
     Dates: start: 20181010

REACTIONS (16)
  - Stoma site discharge [Recovered/Resolved]
  - Decreased appetite [Unknown]
  - Stoma site hypergranulation [Recovered/Resolved]
  - Confusional state [Unknown]
  - Forearm fracture [Unknown]
  - Stoma site erythema [Recovering/Resolving]
  - Medical device site injury [Unknown]
  - Weight decreased [Unknown]
  - Device dislocation [Recovered/Resolved]
  - Fall [Not Recovered/Not Resolved]
  - Dyskinesia [Unknown]
  - Contusion [Not Recovered/Not Resolved]
  - Tooth loss [Unknown]
  - Device issue [Recovered/Resolved]
  - Dementia [Unknown]
  - Face injury [Unknown]
